FAERS Safety Report 6187311-7 (Version None)
Quarter: 2009Q2

REPORT INFORMATION
  Report Type: 
  Country: None (occurrence: None)
  Receive Date: 20090512
  Receipt Date: 20090506
  Transmission Date: 20091009
  Serious: No
  Sender: FDA-Public Use
  Company Number: DE-JNJFOC-20090406778

PATIENT
  Sex: Female
  Weight: 60 kg

DRUGS (2)
  1. DURAGESIC-100 [Suspect]
     Indication: SPINAL COLUMN STENOSIS
     Route: 062
  2. PREDNISOLONE [Suspect]
     Indication: SPINAL COLUMN STENOSIS
     Route: 065

REACTIONS (3)
  - APPLICATION SITE EROSION [None]
  - DRUG ADMINISTERED AT INAPPROPRIATE SITE [None]
  - PRODUCT QUALITY ISSUE [None]
